FAERS Safety Report 5002765-7 (Version None)
Quarter: 2006Q2

REPORT INFORMATION
  Report Type: 
  Country: None (occurrence: None)
  Receive Date: 20060512
  Receipt Date: 20060502
  Transmission Date: 20061013
  Serious: Yes (Hospitalization, Other)
  Sender: FDA-Public Use
  Company Number: T200600429

PATIENT
  Age: 51 Year
  Sex: Male
  Weight: 77.1 kg

DRUGS (7)
  1. METHADOSE [Suspect]
     Indication: BACK PAIN
     Dosage: 230MG QD, 12 TABS IN AM + 11 TABS IN PM, ORAL
     Route: 048
     Dates: start: 19930101
  2. VALIUM /00017001/ (DIAZEPAM) [Concomitant]
  3. METFORMIN (METFORMIN) SOLUTION [Concomitant]
  4. CALCIUM CITRATE (CALCIUM CITRATE) [Concomitant]
  5. VITAMIN D /00107901/ (ERGOCALCIFEROL) [Concomitant]
  6. PROZAC [Concomitant]
  7. WELLBUTRIN /00700501/ (BUPROPION) [Concomitant]

REACTIONS (10)
  - ABASIA [None]
  - BLOOD CREATINE PHOSPHOKINASE INCREASED [None]
  - BLOOD POTASSIUM DECREASED [None]
  - DRUG INEFFECTIVE [None]
  - FALL [None]
  - MOBILITY DECREASED [None]
  - MYALGIA [None]
  - PARALYTIC DISABILITY [None]
  - RIB FRACTURE [None]
  - WHITE BLOOD CELL COUNT INCREASED [None]
